FAERS Safety Report 17220593 (Version 3)
Quarter: 2020Q1

REPORT INFORMATION
  Report Type: Spontaneous
  Country: JP (occurrence: JP)
  Receive Date: 20191231
  Receipt Date: 20200212
  Transmission Date: 20200409
  Serious: Yes (Other)
  Sender: FDA-Public Use
  Company Number: JP-PFIZER INC-2019451308

PATIENT
  Age: 80 Year
  Sex: Female

DRUGS (13)
  1. LYRICA [Suspect]
     Active Substance: PREGABALIN
     Indication: PAIN
     Dosage: 1 DF, BEFORE BEDTIME
     Route: 048
     Dates: start: 20161020, end: 20161027
  2. MEDICON A [Suspect]
     Active Substance: DEXTROMETHORPHAN HYDROBROMIDE\LYSOZYME HYDROCHLORIDE\POTASSIUM CRESOLSULFONATE
     Dosage: UNK
  3. LYRICA [Suspect]
     Active Substance: PREGABALIN
     Indication: BACK PAIN
     Dosage: 1 DF, IN THE MORNING/EVENING
     Route: 048
     Dates: start: 20180615
  4. LYRICA [Suspect]
     Active Substance: PREGABALIN
     Indication: PAIN
     Dosage: 1 DF, 3X/DAY
     Route: 048
     Dates: start: 20161013
  5. LYRICA [Suspect]
     Active Substance: PREGABALIN
     Dosage: 1 DF, IN THE EVENING
     Route: 048
     Dates: start: 20191017
  6. LYRICA [Suspect]
     Active Substance: PREGABALIN
     Dosage: 1 DF, IN THE MORNING/THE EVENING
     Route: 048
     Dates: start: 20191122
  7. LYRICA [Suspect]
     Active Substance: PREGABALIN
     Indication: BACK PAIN
     Dosage: 1 DF, IN THE MORNING/THE EVENING
     Route: 048
     Dates: start: 20191210
  8. DICLOFENAC SODIUM. [Concomitant]
     Active Substance: DICLOFENAC SODIUM
     Indication: BACK PAIN
     Dosage: 1 DF, IN THE MORNING/EVENING
     Route: 048
     Dates: start: 20180715
  9. CODEINE PHOSPHATE [Suspect]
     Active Substance: CODEINE PHOSPHATE
     Indication: POSTOPERATIVE ANALGESIA
     Dosage: 20 MG, AS NEEDED
     Route: 048
     Dates: start: 20161020, end: 20161023
  10. CODEINE PHOSPHATE [Suspect]
     Active Substance: CODEINE PHOSPHATE
     Indication: COUGH
     Dosage: 20 MG, 4X/DAY
     Route: 048
     Dates: start: 20161024, end: 20161106
  11. LYRICA [Suspect]
     Active Substance: PREGABALIN
     Dosage: 2X/DAY (25 MG (MORNING) AND 75 MG (BEFORE BEDTIME))
     Route: 048
     Dates: start: 20161020, end: 20161027
  12. LYRICA [Suspect]
     Active Substance: PREGABALIN
     Dosage: 2X/DAY (25 MG (MORNING) AND 25 MG (BEFORE BEDTIME))
     Route: 048
     Dates: start: 20161024, end: 20161027
  13. LYRICA [Suspect]
     Active Substance: PREGABALIN
     Dosage: 1 DF, IN THE MORNING/THE EVENING
     Route: 048
     Dates: start: 20191030

REACTIONS (5)
  - Dizziness [Unknown]
  - Drug-induced liver injury [Recovered/Resolved]
  - Liver function test increased [Recovered/Resolved]
  - Therapeutic product effect incomplete [Unknown]
  - Hypersensitivity [Unknown]

NARRATIVE: CASE EVENT DATE: 201610
